FAERS Safety Report 7874881-3 (Version None)
Quarter: 2011Q4

REPORT INFORMATION
  Report Type: 
  Country: None (occurrence: None)
  Receive Date: 20111031
  Receipt Date: 20111019
  Transmission Date: 20120403
  Serious: Yes (Hospitalization, Other)
  Sender: FDA-Public Use
  Company Number: US-BAYER-201042057NA

PATIENT
  Age: 22 Year
  Sex: Female
  Weight: 136.5 kg

DRUGS (7)
  1. DROSPIRENONE AND ETHINYL ESTRADIOL [Suspect]
     Indication: PREMENSTRUAL SYNDROME
     Dosage: UNK
     Route: 048
     Dates: start: 20080801, end: 20091201
  2. TOPAMAX [Concomitant]
  3. MAXALT [Concomitant]
  4. LAMICTAL [Concomitant]
  5. YASMIN [Suspect]
     Indication: PREMENSTRUAL SYNDROME
     Dosage: UNK
     Route: 048
     Dates: start: 20061001, end: 20080801
  6. KEPPRA [Concomitant]
  7. CARBATROL [Concomitant]

REACTIONS (4)
  - CONVULSION [None]
  - CHOLELITHIASIS [None]
  - GALLBLADDER INJURY [None]
  - CHOLECYSTITIS CHRONIC [None]
